FAERS Safety Report 21780144 (Version 1)
Quarter: 2022Q4

REPORT INFORMATION
  Report Type: Report from Study
  Country: US (occurrence: US)
  Receive Date: 20221226
  Receipt Date: 20221226
  Transmission Date: 20230113
  Serious: No
  Sender: FDA-Public Use
  Company Number: US-ABBVIE-4250292

PATIENT
  Sex: Male

DRUGS (1)
  1. VENCLEXTA [Suspect]
     Active Substance: VENETOCLAX
     Indication: Chronic lymphocytic leukaemia
     Route: 048
     Dates: start: 20221119

REACTIONS (5)
  - White blood cell count decreased [Unknown]
  - Blood potassium increased [Unknown]
  - Fatigue [Unknown]
  - Decreased appetite [Unknown]
  - Hypophagia [Unknown]
